FAERS Safety Report 4710760-8 (Version None)
Quarter: 2005Q3

REPORT INFORMATION
  Report Type: 
  Country: None (occurrence: None)
  Receive Date: 20050711
  Receipt Date: 20050707
  Transmission Date: 20060218
  Serious: Yes (Hospitalization)
  Sender: FDA-Public Use
  Company Number: PHBS2005ES09731

PATIENT
  Age: 27 Year
  Sex: Female

DRUGS (1)
  1. TORECAN [Suspect]
     Indication: DIZZINESS
     Route: 048
     Dates: start: 20050521

REACTIONS (1)
  - DYSTONIA [None]
